FAERS Safety Report 12528839 (Version 1)
Quarter: 2016Q3

REPORT INFORMATION
  Report Type: Spontaneous
  Country: IR (occurrence: IR)
  Receive Date: 20160705
  Receipt Date: 20160705
  Transmission Date: 20161109
  Serious: Yes (Hospitalization)
  Sender: FDA-Public Use
  Company Number: IR-IMPAX LABORATORIES, INC-2016-IPXL-00679

PATIENT
  Age: 43 Year
  Sex: Female

DRUGS (1)
  1. PHENYTOIN CHEWABLE [Suspect]
     Active Substance: PHENYTOIN
     Indication: PRODUCT USED FOR UNKNOWN INDICATION
     Dosage: 4 ML (200 MG)
     Route: 013

REACTIONS (4)
  - Wrong drug administered [Recovered/Resolved]
  - Arterial thrombosis [Recovered/Resolved]
  - Gangrene [Recovered/Resolved]
  - Accidental exposure to product [Recovered/Resolved]
